FAERS Safety Report 6794695 (Version 19)
Quarter: 2013Q4

REPORT INFORMATION
  Report Type: Spontaneous
  Country: US (occurrence: US)
  Receive Date: 20081023
  Receipt Date: 20131104
  Transmission Date: 20140711
  Serious: Yes (Hospitalization, Other)
  Sender: FDA-Public Use
  Company Number: PHEH2008US09306

PATIENT
  Age: 62 Year
  Sex: Female

DRUGS (88)
  1. AREDIA [Suspect]
  2. ZOMETA [Suspect]
     Dates: end: 200607
  3. MIACALCIN [Concomitant]
  4. SYNTHROID [Concomitant]
     Dosage: 125 MCG, DAILY
  5. VITAMIN D [Concomitant]
     Dosage: 50000 IU, BID
  6. NEURONTIN [Concomitant]
     Dosage: 400 MG, QID
  7. DEXAMETHASONE [Concomitant]
     Dosage: 4 MG, 10 TABS WEEKLY
  8. REVLIMID [Concomitant]
     Dosage: 25 MG, DAILY
  9. BACTRIM [Concomitant]
     Dosage: 800MG-160MG, BID
  10. MELOXICAM [Concomitant]
     Dosage: 7.5 MG, DAILY
  11. CORTEF                                  /CAN/ [Concomitant]
     Dosage: 10 MG, BID
  12. ZITHROMAX ^HEINRICH MACK^ [Concomitant]
     Dosage: 500 MG, DAILY
  13. DECADRON                                /CAN/ [Concomitant]
     Dosage: 4 MG, QID
  14. POTASSIUM [Concomitant]
     Dosage: 40 MEQ
  15. INFLUENZA VACCINE [Concomitant]
  16. ESTRADIOL [Concomitant]
  17. EFFEXOR [Concomitant]
  18. PROVIGIL [Concomitant]
  19. FOLIC ACID [Concomitant]
  20. K-DUR [Concomitant]
  21. LORAZEPAM [Concomitant]
  22. SIMVASTATIN [Concomitant]
  23. PROTONIX ^PHARMACIA^ [Concomitant]
  24. LEXAPRO [Concomitant]
  25. QUESTRAN [Concomitant]
  26. PRILOSEC [Concomitant]
  27. DURAGESIC [Concomitant]
  28. COUMADIN ^BOOTS^ [Concomitant]
  29. ZANAFLEX [Concomitant]
  30. LASIX [Concomitant]
  31. LEVSINEX [Concomitant]
  32. XANAX [Concomitant]
  33. FLONASE [Concomitant]
  34. CARISOPRODOL [Concomitant]
  35. ROXICODONE [Concomitant]
  36. PROCRIT                            /00909301/ [Concomitant]
  37. CELEBREX [Concomitant]
  38. BLOOD TRANSFUSION, AUXILIARY PRODUCTS [Concomitant]
  39. LABETALOL [Concomitant]
  40. ASPIRIN ^BAYER^ [Concomitant]
  41. CALCIUM CARBONATE [Concomitant]
  42. PEPCID [Concomitant]
  43. APAP [Concomitant]
  44. MAGNESIUM SULFATE [Concomitant]
  45. LOMOTIL [Concomitant]
  46. FLAGYL [Concomitant]
  47. POTASSIUM PHOSPHATE DIBASIC [Concomitant]
  48. HEPARIN [Concomitant]
  49. NIPRIDE [Concomitant]
  50. APRESOLINE [Concomitant]
  51. BENADRYL ^ACHE^ [Concomitant]
  52. ZYPREXA [Concomitant]
  53. PHENERGAN ^AVENTIS PHARMA^ [Concomitant]
  54. REGLAN                                  /USA/ [Concomitant]
  55. VITAMIN B1 [Concomitant]
  56. TUMS [Concomitant]
  57. IMODIUM ^JANSSEN^ [Concomitant]
  58. FENTANYL [Concomitant]
  59. POTASSIUM CHLORIDE [Concomitant]
  60. SODIUM CHLORIDE [Concomitant]
  61. PROTONIX ^PHARMACIA^ [Concomitant]
  62. ESTRACE ^BRISTOL-MYERS SQUIBB^ [Concomitant]
  63. MULTIVITAMINS [Concomitant]
  64. DILAUDID [Concomitant]
  65. MAGNESIUM CITRATE [Concomitant]
  66. AMBIEN [Concomitant]
  67. MILK OF MAGNESIA [Concomitant]
  68. CORTEF                             /00028601/ [Concomitant]
  69. TOPROL XL [Concomitant]
  70. DEMADEX [Concomitant]
  71. LEVAQUIN [Concomitant]
  72. OSCAL [Concomitant]
  73. CALCIUM GLUCONATE [Concomitant]
  74. CLONAZEPAM [Concomitant]
  75. HYDROCORTISONE [Concomitant]
  76. REMERON [Concomitant]
  77. CYANOCOBALAMIN [Concomitant]
  78. SANCTURA [Concomitant]
  79. BACTRIM DS [Concomitant]
  80. COUMADIN ^BOOTS^ [Concomitant]
  81. TYLOX [Concomitant]
  82. GENTAMICIN [Concomitant]
  83. RIFAMPIN [Concomitant]
  84. ZYVOX [Concomitant]
  85. HUMULIN [Concomitant]
  86. ZOFRAN [Concomitant]
  87. PREMARIN                                /NEZ/ [Concomitant]
  88. VOLTAREN                           /00372303/ [Concomitant]

REACTIONS (101)
  - Spinal osteoarthritis [Unknown]
  - Osteopenia [Unknown]
  - Osteonecrosis of jaw [Unknown]
  - Injury [Unknown]
  - Disability [Unknown]
  - Toothache [Unknown]
  - Pain [Unknown]
  - Bone fragmentation [Unknown]
  - Bone disorder [Unknown]
  - Edentulous [Unknown]
  - Anxiety [Unknown]
  - Anhedonia [Unknown]
  - Tooth fracture [Unknown]
  - Tooth loss [Unknown]
  - Pain in jaw [Unknown]
  - Oedema mouth [Unknown]
  - Pathological fracture [Unknown]
  - Diarrhoea [Unknown]
  - Anaemia [Unknown]
  - Fatigue [Unknown]
  - Pallor [Unknown]
  - Sacroiliitis [Unknown]
  - Costochondritis [Unknown]
  - Synovial cyst [Unknown]
  - Periodontal disease [Unknown]
  - Gingivitis [Unknown]
  - Stress urinary incontinence [Unknown]
  - Tremor [Unknown]
  - Rhabdomyolysis [Unknown]
  - Breast cancer recurrent [Unknown]
  - Coronary artery disease [Unknown]
  - Type 1 diabetes mellitus [Unknown]
  - Osteoarthritis [Unknown]
  - Granulomatous liver disease [Unknown]
  - Umbilical hernia [Unknown]
  - Pancytopenia [Unknown]
  - Hypocalcaemia [Unknown]
  - Fall [Unknown]
  - Gastrooesophageal reflux disease [Unknown]
  - Intervertebral disc protrusion [Unknown]
  - Lumbar spinal stenosis [Unknown]
  - Nodule [Unknown]
  - Scar [Unknown]
  - Meningioma [Unknown]
  - Radiculopathy [Unknown]
  - Upper respiratory tract infection [Unknown]
  - Hypovolaemia [Unknown]
  - Malnutrition [Unknown]
  - Aplastic anaemia [Unknown]
  - Candida infection [Unknown]
  - Gastroenteritis [Unknown]
  - Urinary tract infection [Unknown]
  - Streptococcal sepsis [Unknown]
  - Encephalitis post measles [Unknown]
  - Immunosuppression [Unknown]
  - Acquired porphyria [Unknown]
  - Splenomegaly [Unknown]
  - Renal cyst [Unknown]
  - Device related infection [Unknown]
  - Fungaemia [Unknown]
  - Bacteraemia [Unknown]
  - Asthma [Unknown]
  - Narcolepsy [Unknown]
  - Electrolyte imbalance [Unknown]
  - Tracheobronchitis [Unknown]
  - Depression [Unknown]
  - Hypertension [Unknown]
  - Joint prosthesis user [Unknown]
  - Hypophosphataemia [Unknown]
  - Colitis [Unknown]
  - Femoral neck fracture [Unknown]
  - Nausea [Unknown]
  - Vomiting [Unknown]
  - Cholecystitis acute [Unknown]
  - Hepatic lesion [Unknown]
  - Central nervous system lymphoma [Unknown]
  - Cholangitis chronic [Unknown]
  - Leukopenia [Unknown]
  - Colitis [Unknown]
  - Pneumatosis intestinalis [Unknown]
  - Decreased appetite [Unknown]
  - Food aversion [Unknown]
  - Fungal infection [Unknown]
  - Erythropoiesis abnormal [Unknown]
  - Pancreatic insufficiency [Unknown]
  - Malabsorption [Unknown]
  - Steatorrhoea [Unknown]
  - Iron metabolism disorder [Unknown]
  - Blood glucose increased [Unknown]
  - Restless legs syndrome [Unknown]
  - Hyperlipidaemia [Unknown]
  - Orthostatic hypotension [Unknown]
  - Carpal tunnel syndrome [Unknown]
  - Scapula fracture [Unknown]
  - Adrenal insufficiency [Unknown]
  - Syncope [Unknown]
  - Circulatory collapse [Unknown]
  - Marrow hyperplasia [Unknown]
  - Bone marrow granuloma [Unknown]
  - Anisocytosis [Unknown]
  - Myelodysplastic syndrome [Unknown]
